FAERS Safety Report 15821187 (Version 1)
Quarter: 2019Q1

REPORT INFORMATION
  Report Type: Spontaneous
  Country: BR (occurrence: BR)
  Receive Date: 20190114
  Receipt Date: 20190114
  Transmission Date: 20190417
  Serious: Yes (Hospitalization)
  Sender: FDA-Public Use
  Company Number: BR-MYLANLABS-2019M1001156

PATIENT
  Age: 63 Year
  Sex: Female

DRUGS (1)
  1. CAPTOPRIL. [Suspect]
     Active Substance: CAPTOPRIL
     Indication: HYPERTENSION
     Dosage: REGULARLY
     Route: 065
     Dates: end: 201602

REACTIONS (1)
  - Insulin autoimmune syndrome [Recovering/Resolving]
